FAERS Safety Report 5586495-9 (Version None)
Quarter: 2007Q4

REPORT INFORMATION
  Report Type: 
  Country: None (occurrence: None)
  Receive Date: 20071205
  Receipt Date: 20070730
  Transmission Date: 20080405
  Serious: Yes (Other)
  Sender: FDA-Public Use
  Company Number: HQWYE338902AUG07

PATIENT
  Age: 47 Year
  Sex: Female
  Weight: 100.79 kg

DRUGS (4)
  1. EFFEXOR XR [Suspect]
     Indication: MENOPAUSE
     Dosage: 150 MG 1X PER 1 DAY, ORAL ; 150 MG, 1X PER 1 DAY, ORAL
     Route: 048
     Dates: start: 20000101, end: 20070726
  2. EFFEXOR XR [Suspect]
     Indication: MENOPAUSE
     Dosage: 150 MG 1X PER 1 DAY, ORAL ; 150 MG, 1X PER 1 DAY, ORAL
     Route: 048
     Dates: start: 20070729
  3. WELLBUTRIN [Concomitant]
  4. AMITRIPTYLINE HCL [Concomitant]

REACTIONS (9)
  - DISTURBANCE IN ATTENTION [None]
  - DRUG WITHDRAWAL SYNDROME [None]
  - FEELING DRUNK [None]
  - HOT FLUSH [None]
  - MENTAL DISORDER [None]
  - NERVOUSNESS [None]
  - PARAESTHESIA [None]
  - RETCHING [None]
  - TREMOR [None]
